FAERS Safety Report 8761272 (Version 3)
Quarter: 2012Q4

REPORT INFORMATION
  Report Type: 
  Country: US (occurrence: US)
  Receive Date: 20120830
  Receipt Date: 20121112
  Transmission Date: 20130627
  Serious: Yes (Hospitalization, Other)
  Sender: FDA-Public Use
  Company Number: US-ASTRAZENECA-2012SE60860

PATIENT
  Age: 45 Year
  Sex: Female
  Weight: 113.4 kg

DRUGS (20)
  1. SEROQUEL [Suspect]
     Indication: BIPOLAR DISORDER
     Route: 048
     Dates: start: 201012
  2. SEROQUEL [Suspect]
     Indication: BIPOLAR DISORDER
     Route: 048
     Dates: start: 2010
  3. SEROQUEL [Suspect]
     Indication: BIPOLAR DISORDER
     Route: 048
     Dates: start: 201106, end: 201109
  4. SEROQUEL [Suspect]
     Indication: BIPOLAR DISORDER
     Route: 048
     Dates: start: 201109, end: 201204
  5. SEROQUEL [Suspect]
     Indication: BIPOLAR DISORDER
     Route: 048
     Dates: start: 201206
  6. SEROQUEL [Suspect]
     Indication: BIPOLAR DISORDER
     Route: 048
  7. SEROQUEL [Suspect]
     Indication: BIPOLAR DISORDER
     Route: 048
  8. SEROQUEL [Suspect]
     Indication: BIPOLAR DISORDER
     Route: 048
  9. SEROQUEL [Suspect]
     Indication: BIPOLAR DISORDER
     Route: 048
     Dates: end: 201209
  10. SEROQUEL [Suspect]
     Indication: BIPOLAR DISORDER
     Dosage: TWO 300 MG TABLETS + ONE 150 MG TABLET DAILY
     Route: 048
  11. REMERON [Concomitant]
     Indication: DEPRESSION
     Route: 048
     Dates: start: 200801
  12. PROZAC [Concomitant]
     Indication: DEPRESSION
     Route: 048
     Dates: start: 2007
  13. ADDERALL [Concomitant]
     Indication: ATTENTION DEFICIT/HYPERACTIVITY DISORDER
     Route: 048
     Dates: start: 2012
  14. LEVOTHYROXINE [Concomitant]
     Indication: HYPOTHYROIDISM
     Route: 048
     Dates: start: 1986
  15. DIAZEPAM [Concomitant]
     Indication: CONVULSION
     Route: 048
     Dates: start: 200801
  16. DIAZEPAM [Concomitant]
     Indication: MUSCLE SPASMS
     Route: 048
     Dates: start: 200801
  17. DILANTIN [Concomitant]
     Indication: CONVULSION
     Route: 048
     Dates: start: 200801
  18. GABAPENTIN [Concomitant]
     Indication: FIBROMYALGIA
     Route: 048
     Dates: start: 2012
  19. NORCO [Concomitant]
     Indication: PAIN
     Dosage: 10/325MG AS REQUIRED
     Route: 048
  20. HYDROCODONE [Concomitant]
     Indication: SPONDYLOLISTHESIS
     Dosage: AS REQUIRED
     Route: 048

REACTIONS (15)
  - Suicidal ideation [Recovered/Resolved]
  - Weight increased [Recovering/Resolving]
  - Convulsion [Recovering/Resolving]
  - Bipolar disorder [Recovering/Resolving]
  - Libido increased [Unknown]
  - Aggression [Unknown]
  - Swelling [Unknown]
  - Thinking abnormal [Unknown]
  - Tremor [Unknown]
  - Anxiety [Unknown]
  - Feeling abnormal [Unknown]
  - Drug dose omission [Unknown]
  - Intentional drug misuse [Unknown]
  - Intentional drug misuse [Unknown]
  - Drug effect incomplete [Unknown]
